FAERS Safety Report 7266346-7 (Version None)
Quarter: 2011Q1

REPORT INFORMATION
  Report Type: 
  Country: None (occurrence: None)
  Receive Date: 20110120
  Receipt Date: 20110104
  Transmission Date: 20110831
  Serious: Yes (Hospitalization)
  Sender: FDA-Public Use
  Company Number: 2010003550

PATIENT
  Age: 37 Year
  Sex: Female
  Weight: 33.3 kg

DRUGS (8)
  1. CARBOPLATIN [Suspect]
     Indication: NON-SMALL CELL LUNG CANCER
     Dosage: (600 MG),INTRAVENOUS ; (520 MG),INTRAVENOUS
     Route: 042
     Dates: start: 20100706
  2. TRAMADOL HCL [Concomitant]
  3. GEMCITABINE [Suspect]
     Indication: NON-SMALL CELL LUNG CANCER
     Dosage: (1.6 GM),INTRAVENOUS ; (1.5 GM),INTRAVENOUS
     Route: 042
     Dates: start: 20100706
  4. METOCLOPRAMIDE [Concomitant]
  5. FERROUS SULFATE TAB [Concomitant]
  6. MULTIVITAMIN [Concomitant]
  7. FELODIPINE [Concomitant]
  8. ERLOTINIB / PLACEBO (ERLOTINIB) (TABLET) (ERLOTINIB) [Suspect]
     Indication: NON-SMALL CELL LUNG CANCER
     Dosage: ORAL
     Route: 048
     Dates: start: 20100727

REACTIONS (9)
  - ANAEMIA [None]
  - DYSPNOEA [None]
  - HAEMOTHORAX [None]
  - BRONCHIAL HYPERREACTIVITY [None]
  - MUSCULOSKELETAL PAIN [None]
  - PERICARDIAL EFFUSION [None]
  - DIZZINESS [None]
  - BREATH SOUNDS ABNORMAL [None]
  - PLEURAL EFFUSION [None]
